FAERS Safety Report 16650206 (Version 1)
Quarter: 2019Q3

REPORT INFORMATION
  Report Type: Spontaneous
  Country: US (occurrence: US)
  Receive Date: 20190731
  Receipt Date: 20190731
  Transmission Date: 20191004
  Serious: No
  Sender: FDA-Public Use
  Company Number: US-TEVA-2019-US-1084176

PATIENT
  Sex: Male

DRUGS (14)
  1. GEMFIBROZIL. [Suspect]
     Active Substance: GEMFIBROZIL
     Route: 065
  2. LAMIVUDINE. [Interacting]
     Active Substance: LAMIVUDINE
     Indication: ANTIRETROVIRAL THERAPY
     Route: 065
  3. EMTRICITABINE/TENOFOVIR-ALAFENAMIDE [Suspect]
     Active Substance: EMTRICITABINE\TENOFOVIR ALAFENAMIDE FUMARATE
     Indication: ANTIRETROVIRAL THERAPY
     Route: 065
  4. COTRIMOXAZOLE [Suspect]
     Active Substance: SULFAMETHOXAZOLE\TRIMETHOPRIM
     Indication: PNEUMOCYSTIS JIROVECII PNEUMONIA
     Route: 065
  5. COTRIMOXAZOLE [Suspect]
     Active Substance: SULFAMETHOXAZOLE\TRIMETHOPRIM
     Indication: PROPHYLAXIS
  6. MYCOPHENOLATE [Concomitant]
     Active Substance: MYCOPHENOLIC ACID
     Indication: IMMUNOSUPPRESSANT DRUG THERAPY
     Route: 065
  7. ABACAVIR. [Interacting]
     Active Substance: ABACAVIR
     Indication: ANTIRETROVIRAL THERAPY
     Route: 065
  8. PREDNISONE. [Concomitant]
     Active Substance: PREDNISONE
     Indication: IMMUNOSUPPRESSANT DRUG THERAPY
     Route: 065
  9. ATAZANAVIR/RITONAVIR [Interacting]
     Active Substance: ATAZANAVIR\RITONAVIR
     Indication: ANTIRETROVIRAL THERAPY
     Route: 065
  10. TACROLIMUS. [Interacting]
     Active Substance: TACROLIMUS
     Indication: IMMUNOSUPPRESSANT DRUG THERAPY
     Dosage: INITIAL DOSAGE NOT STATED
     Route: 065
  11. METOPROLOL. [Concomitant]
     Active Substance: METOPROLOL
     Indication: HYPERTENSION
     Route: 065
  12. TERAZOSIN [Concomitant]
     Active Substance: TERAZOSIN HYDROCHLORIDE
     Indication: HYPERTENSION
     Route: 065
  13. TACROLIMUS. [Interacting]
     Active Substance: TACROLIMUS
     Indication: IMMUNOSUPPRESSANT DRUG THERAPY
     Dosage: EVENTUALLY DOSE WAS INCREASED 70 TIMES
     Route: 065
  14. DOLUTEGRAVIR [Suspect]
     Active Substance: DOLUTEGRAVIR
     Indication: ANTIRETROVIRAL THERAPY
     Route: 065

REACTIONS (3)
  - Drug level increased [Recovered/Resolved]
  - Drug interaction [Recovered/Resolved]
  - Blood creatinine increased [Recovered/Resolved]
